FAERS Safety Report 8967640 (Version 1)
Quarter: 2012Q4

REPORT INFORMATION
  Report Type: Spontaneous
  Country: DK (occurrence: None)
  Receive Date: 20121204
  Receipt Date: 20121204
  Transmission Date: 20130627
  Serious: Yes (Hospitalization)
  Sender: FDA-Public Use
  Company Number: 2012MA013732

PATIENT
  Age: 73 Year
  Sex: Female

DRUGS (1)
  1. NAPROXEN [Suspect]
     Indication: PAIN
     Dates: end: 20121011

REACTIONS (1)
  - Epistaxis [None]
